FAERS Safety Report 14277645 (Version 2)
Quarter: 2024Q1

REPORT INFORMATION
  Report Type: Spontaneous
  Country: TR (occurrence: TR)
  Receive Date: 20171211
  Receipt Date: 20240216
  Transmission Date: 20240410
  Serious: Yes (Hospitalization, Congenital Anomaly, Other)
  Sender: FDA-Public Use
  Company Number: TR-UCBSA-2017049705

PATIENT
  Age: 21 Year
  Sex: Female

DRUGS (1)
  1. LEVETIRACETAM [Suspect]
     Active Substance: LEVETIRACETAM
     Indication: Seizure
     Dosage: 750 MG, 2X/DAY (BID)

REACTIONS (1)
  - Sturge-Weber syndrome [Unknown]
